FAERS Safety Report 5896291-0 (Version None)
Quarter: 2008Q3

REPORT INFORMATION
  Report Type: 
  Country: None (occurrence: None)
  Receive Date: 20080924
  Receipt Date: 20070804
  Transmission Date: 20090109
  Serious: Yes (Hospitalization)
  Sender: FDA-Public Use
  Company Number: US-ASTRAZENECA-2007UW18885

PATIENT
  Sex: Female

DRUGS (2)
  1. SEROQUEL [Suspect]
     Indication: BIPOLAR DISORDER
     Route: 048
  2. HALDOL [Suspect]

REACTIONS (3)
  - DEHYDRATION [None]
  - DELIRIUM [None]
  - NEUROLEPTIC MALIGNANT SYNDROME [None]
